FAERS Safety Report 25805517 (Version 1)
Quarter: 2025Q3

REPORT INFORMATION
  Report Type: Spontaneous
  Country: EU (occurrence: EU)
  Receive Date: 20250916
  Receipt Date: 20250916
  Transmission Date: 20251020
  Serious: Yes (Hospitalization, Other)
  Sender: CHEPLAPHARM
  Company Number: None

PATIENT
  Age: 66 Year
  Sex: Female
  Weight: 53.2 kg

DRUGS (28)
  1. HYDROXYUREA [Suspect]
     Active Substance: HYDROXYUREA
     Indication: Acute myeloid leukaemia
     Route: 048
     Dates: start: 20250516, end: 20250522
  2. PREDNISONE [Suspect]
     Active Substance: PREDNISONE
     Indication: Tumour associated fever
     Dates: start: 2025
  3. PREDNISONE [Suspect]
     Active Substance: PREDNISONE
     Indication: Acute myeloid leukaemia
     Dates: start: 2025
  4. LINEZOLID [Suspect]
     Active Substance: LINEZOLID
     Indication: Febrile bone marrow aplasia
     Dosage: 600MG X2/DAY?DAILY DOSE: 1200 MILLIGRAM
     Dates: start: 20250520, end: 20250524
  5. LINEZOLID [Suspect]
     Active Substance: LINEZOLID
     Indication: Febrile bone marrow aplasia
     Dosage: 600MG X2/DAY?DAILY DOSE: 1200 MILLIGRAM
     Dates: start: 20250528
  6. VIDAZA [Suspect]
     Active Substance: AZACITIDINE
     Indication: Acute myeloid leukaemia
     Dosage: POWDER FOR INJECTABLE SUSPENSION. VIDAZA: 75 MG/M2 SC, OR 115 MG DT, FROM D1 TO D7.
     Route: 058
     Dates: start: 20250520, end: 20250526
  7. VENETOCLAX [Suspect]
     Active Substance: VENETOCLAX
     Dosage: VENETOCLAX: 400 MG PER DAY FROM D1 TO D7, WITH A RAPID RAMP-UP OVER 3 DAYS
     Dates: start: 20250520
  8. ONDANSETRON [Suspect]
     Active Substance: ONDANSETRON
     Indication: Prophylaxis of nausea and vomiting
     Dosage: DAILY DOSE: 16 MILLIGRAM
     Route: 042
     Dates: start: 20250520, end: 20250526
  9. CASPOFUNGIN [Suspect]
     Active Substance: CASPOFUNGIN
     Indication: Antibiotic therapy
     Dosage: DAILY DOSE: 70 MILLIGRAM
     Route: 042
     Dates: start: 20250518
  10. MEROPENEM [Suspect]
     Active Substance: MEROPENEM
     Indication: Antibiotic therapy
     Dosage: DAILY DOSE: 70 MILLIGRAM
     Route: 042
     Dates: start: 20250518
  11. ACETAMINOPHEN [Suspect]
     Active Substance: ACETAMINOPHEN
     Indication: Analgesic intervention supportive therapy
     Route: 048
     Dates: start: 20250518
  12. ACETAMINOPHEN [Suspect]
     Active Substance: ACETAMINOPHEN
     Indication: Antipyresis
     Route: 048
     Dates: start: 20250518
  13. IOMERON [Suspect]
     Active Substance: IOMEPROL
     Indication: Imaging procedure
     Dates: start: 20250516, end: 20250516
  14. IOMERON [Suspect]
     Active Substance: IOMEPROL
     Indication: Imaging procedure
     Dates: start: 20250519, end: 20250519
  15. IRBESARTAN [Concomitant]
     Active Substance: IRBESARTAN
     Indication: Hypertension
  16. NIFEDIPINE [Concomitant]
     Active Substance: NIFEDIPINE
     Indication: Hypertension
  17. ROSUVASTATIN [Concomitant]
     Active Substance: ROSUVASTATIN
     Indication: Dyslipidaemia
  18. PIPERACILLIN SODIUM\TAZOBACTAM SODIUM [Concomitant]
     Active Substance: PIPERACILLIN SODIUM\TAZOBACTAM SODIUM
     Indication: Antibiotic therapy
     Dates: start: 2025, end: 20250518
  19. NITROGLYCERIN [Concomitant]
     Active Substance: NITROGLYCERIN
     Dates: start: 202505
  20. KARDEGIC [Concomitant]
     Active Substance: ASPIRIN DL-LYSINE
  21. ALLOPURINOL [Concomitant]
     Active Substance: ALLOPURINOL
  22. BISOPROLOL [Concomitant]
     Active Substance: BISOPROLOL
  23. ZOPICLONE [Concomitant]
     Active Substance: ZOPICLONE
  24. ALPRAZOLAM [Concomitant]
     Active Substance: ALPRAZOLAM
  25. ATORVASTATIN [Concomitant]
     Active Substance: ATORVASTATIN
  26. LANSOPRAZOLE [Concomitant]
     Active Substance: LANSOPRAZOLE
  27. IVERMECTIN [Concomitant]
     Active Substance: IVERMECTIN
     Dates: start: 20250520
  28. POSACONAZOLE [Concomitant]
     Active Substance: POSACONAZOLE
     Indication: Antifungal prophylaxis
     Dates: start: 202505

REACTIONS (3)
  - Rash maculo-papular [Recovering/Resolving]
  - Pneumonia [Unknown]
  - Off label use [Unknown]

NARRATIVE: CASE EVENT DATE: 20250519
